FAERS Safety Report 8549495-2 (Version None)
Quarter: 2012Q3

REPORT INFORMATION
  Report Type: 
  Country: None (occurrence: None)
  Receive Date: 20120730
  Receipt Date: 20120716
  Transmission Date: 20120928
  Serious: Yes (Death, Hospitalization)
  Sender: FDA-Public Use
  Company Number: MX-MYLANLABS-2012S1014604

PATIENT
  Age: 70 Year
  Sex: Female
  Weight: 57 kg

DRUGS (6)
  1. CLOPIDOGREL [Concomitant]
     Dosage: 75 MG/DAY
     Route: 048
  2. METOPROLOL TARTRATE [Concomitant]
     Dosage: 25MG EVERY 12H
     Route: 048
  3. ISOSORBIDE MONONITRATE [Concomitant]
     Dosage: 50 MG/DAY
     Route: 048
  4. ENALAPRIL MALEATE [Concomitant]
     Dosage: 5MG EVERY 12H
     Route: 048
  5. SIMVASTATIN [Suspect]
     Dosage: 80 MG/DAY
     Route: 048
  6. ASPIRIN [Concomitant]
     Dosage: 100 MG/DAY
     Route: 048

REACTIONS (7)
  - RENAL FAILURE [None]
  - HEPATIC FAILURE [None]
  - RHABDOMYOLYSIS [None]
  - DISSEMINATED INTRAVASCULAR COAGULATION [None]
  - SEPTIC SHOCK [None]
  - INTESTINAL OBSTRUCTION [None]
  - MULTI-ORGAN FAILURE [None]
